FAERS Safety Report 6539162-9 (Version None)
Quarter: 2010Q1

REPORT INFORMATION
  Report Type: 
  Country: None (occurrence: None)
  Receive Date: 20100112
  Receipt Date: 20091230
  Transmission Date: 20100710
  Serious: Yes (Hospitalization)
  Sender: FDA-Public Use
  Company Number: 003764

PATIENT
  Sex: Female
  Weight: 84.4 kg

DRUGS (8)
  1. CIMZIA [Suspect]
     Indication: RHEUMATOID ARTHRITIS
     Dosage: 400 MG 1X/2 WEEKS, EVERY TWO WEEKS
     Route: 058
     Dates: start: 20091208, end: 20091208
  2. METHOTREAXATE (METHOTREXATE) [Suspect]
     Indication: RHEUMATOID ARTHRITIS
     Dosage: 25 MG 1/X WEEK, WEEKLY
     Route: 058
     Dates: start: 19890101, end: 20091201
  3. PREDNISONE TAB [Concomitant]
  4. NABUMETONE [Concomitant]
  5. FOLIC ACID [Concomitant]
  6. OMEPRAZOLE [Concomitant]
  7. RAMIPRIL [Concomitant]
  8. AMILORID/HCTZ [Concomitant]

REACTIONS (8)
  - CANDIDIASIS [None]
  - CHEST PAIN [None]
  - COUGH [None]
  - INCREASED BRONCHIAL SECRETION [None]
  - INJECTION SITE REACTION [None]
  - NASOPHARYNGITIS [None]
  - OROPHARYNGEAL PAIN [None]
  - PNEUMONIA [None]
